FAERS Safety Report 17085220 (Version 1)
Quarter: 2019Q4

REPORT INFORMATION
  Report Type: Report from Study
  Country: DE (occurrence: DE)
  Receive Date: 20191127
  Receipt Date: 20191127
  Transmission Date: 20200122
  Serious: Yes (Hospitalization, Other)
  Sender: FDA-Public Use
  Company Number: DE-BAXTER-2019BAX024300

PATIENT
  Age: 71 Year
  Sex: Female
  Weight: 53 kg

DRUGS (44)
  1. DOXIL [Suspect]
     Active Substance: DOXORUBICIN HYDROCHLORIDE
     Route: 041
     Dates: start: 20190612
  2. VINCRISTINE [Suspect]
     Active Substance: VINCRISTINE
     Route: 041
     Dates: start: 20190219, end: 20190219
  3. VINCRISTINE [Suspect]
     Active Substance: VINCRISTINE
     Route: 041
     Dates: start: 20190401, end: 20190401
  4. ACICLOVIR [Concomitant]
     Active Substance: ACYCLOVIR
     Indication: PROPHYLAXIS
     Route: 048
     Dates: start: 20190129
  5. ENDOXAN 1G [Suspect]
     Active Substance: CYCLOPHOSPHAMIDE
     Indication: DIFFUSE LARGE B-CELL LYMPHOMA
     Route: 041
     Dates: start: 20190218, end: 20190218
  6. RITUXIMAB. [Suspect]
     Active Substance: RITUXIMAB
     Route: 041
     Dates: start: 20190725
  7. PREDNISONE. [Suspect]
     Active Substance: PREDNISONE
     Route: 048
     Dates: start: 20190522, end: 20190526
  8. VINCRISTINE [Suspect]
     Active Substance: VINCRISTINE
     Route: 041
     Dates: start: 20190424, end: 20190424
  9. VINCRISTINE [Suspect]
     Active Substance: VINCRISTINE
     Route: 041
     Dates: start: 20190612
  10. OXYCODON [Concomitant]
     Active Substance: OXYCODONE
     Indication: PAIN
     Route: 048
     Dates: start: 20190118
  11. DEKRISTOL [Concomitant]
     Active Substance: CHOLECALCIFEROL
     Indication: VITAMIN D DEFICIENCY
     Route: 048
     Dates: start: 20190116
  12. CLEMASTINE [Concomitant]
     Active Substance: CLEMASTINE
     Indication: PROPHYLAXIS
     Route: 042
     Dates: start: 20190218
  13. ENDOXAN 1G [Suspect]
     Active Substance: CYCLOPHOSPHAMIDE
     Route: 041
     Dates: start: 20190311, end: 20190311
  14. ENDOXAN 1G [Suspect]
     Active Substance: CYCLOPHOSPHAMIDE
     Route: 041
     Dates: start: 20190522, end: 20190522
  15. PREDNISONE. [Suspect]
     Active Substance: PREDNISONE
     Indication: DIFFUSE LARGE B-CELL LYMPHOMA
     Route: 048
     Dates: start: 20190220, end: 20190223
  16. VINCRISTINE [Suspect]
     Active Substance: VINCRISTINE
     Indication: DIFFUSE LARGE B-CELL LYMPHOMA
     Route: 041
     Dates: start: 20190311, end: 20190311
  17. NOVAMINSULFON [Concomitant]
     Active Substance: METAMIZOLE
     Indication: PAIN
     Route: 048
     Dates: start: 20190109
  18. PANTOPRAZOLE [Concomitant]
     Active Substance: PANTOPRAZOLE
     Indication: PROPHYLAXIS
     Route: 048
     Dates: start: 20190109
  19. ENDOXAN 1G [Suspect]
     Active Substance: CYCLOPHOSPHAMIDE
     Route: 041
     Dates: start: 20190401, end: 20190401
  20. RITUXIMAB. [Suspect]
     Active Substance: RITUXIMAB
     Indication: DIFFUSE LARGE B-CELL LYMPHOMA
     Route: 041
     Dates: start: 20190311, end: 20190311
  21. RITUXIMAB. [Suspect]
     Active Substance: RITUXIMAB
     Route: 041
     Dates: start: 20190712
  22. PREDNISONE. [Suspect]
     Active Substance: PREDNISONE
     Route: 048
     Dates: start: 20190612
  23. RAMIPRIL. [Concomitant]
     Active Substance: RAMIPRIL
     Indication: HYPERTENSION
     Route: 048
     Dates: start: 20190124, end: 20190423
  24. PARACETAMOL [Concomitant]
     Active Substance: ACETAMINOPHEN
     Indication: PAIN
     Route: 048
     Dates: start: 20190121
  25. DOXIL [Suspect]
     Active Substance: DOXORUBICIN HYDROCHLORIDE
     Route: 041
     Dates: start: 20190424, end: 20190424
  26. RITUXIMAB. [Suspect]
     Active Substance: RITUXIMAB
     Route: 041
     Dates: start: 20190424, end: 20190424
  27. RITUXIMAB. [Suspect]
     Active Substance: RITUXIMAB
     Route: 041
     Dates: start: 20190703
  28. MOVICOL [Concomitant]
     Active Substance: POLYETHYLENE GLYCOL 3350\POTASSIUM CHLORIDE\SODIUM BICARBONATE\SODIUM CHLORIDE
     Indication: CONSTIPATION
     Route: 048
     Dates: start: 20190109
  29. ENDOXAN 1G [Suspect]
     Active Substance: CYCLOPHOSPHAMIDE
     Route: 041
     Dates: start: 20190612
  30. RITUXIMAB. [Suspect]
     Active Substance: RITUXIMAB
     Route: 041
     Dates: start: 20190218, end: 20190218
  31. RITUXIMAB. [Suspect]
     Active Substance: RITUXIMAB
     Route: 041
     Dates: start: 20190522
  32. VINCRISTINE [Suspect]
     Active Substance: VINCRISTINE
     Route: 041
     Dates: start: 20190522, end: 20190522
  33. PALONOSETRON. [Concomitant]
     Active Substance: PALONOSETRON HYDROCHLORIDE
     Indication: PROPHYLAXIS
     Route: 042
     Dates: start: 20190218
  34. DOXIL [Suspect]
     Active Substance: DOXORUBICIN HYDROCHLORIDE
     Indication: DIFFUSE LARGE B-CELL LYMPHOMA
     Route: 041
     Dates: start: 20190219, end: 20190219
  35. DOXIL [Suspect]
     Active Substance: DOXORUBICIN HYDROCHLORIDE
     Route: 041
     Dates: start: 20190311, end: 20190311
  36. DOXIL [Suspect]
     Active Substance: DOXORUBICIN HYDROCHLORIDE
     Route: 041
     Dates: start: 20190522, end: 20190522
  37. ENDOXAN 1G [Suspect]
     Active Substance: CYCLOPHOSPHAMIDE
     Route: 041
     Dates: start: 20190424, end: 20190424
  38. RITUXIMAB. [Suspect]
     Active Substance: RITUXIMAB
     Route: 041
     Dates: start: 20190401, end: 20190401
  39. PREDNISONE. [Suspect]
     Active Substance: PREDNISONE
     Route: 048
     Dates: start: 20190312, end: 20190315
  40. PREDNISONE. [Suspect]
     Active Substance: PREDNISONE
     Route: 048
     Dates: start: 20190424, end: 20190428
  41. DOXIL [Suspect]
     Active Substance: DOXORUBICIN HYDROCHLORIDE
     Route: 041
     Dates: start: 20190401, end: 20190401
  42. PREDNISONE. [Suspect]
     Active Substance: PREDNISONE
     Route: 048
     Dates: start: 20190401, end: 20190405
  43. COTRIMOXAZOL [Concomitant]
     Active Substance: SULFAMETHOXAZOLE\TRIMETHOPRIM
     Indication: PROPHYLAXIS
     Route: 048
     Dates: start: 20190129
  44. DEXAMETHASONE. [Concomitant]
     Active Substance: DEXAMETHASONE
     Indication: PROPHYLAXIS
     Route: 042
     Dates: start: 20190218

REACTIONS (4)
  - Anaemia [Recovered/Resolved]
  - Pneumonia [Recovered/Resolved]
  - Chest pain [Recovered/Resolved]
  - Leukopenia [Recovered/Resolved]

NARRATIVE: CASE EVENT DATE: 20190226
